FAERS Safety Report 19506379 (Version 1)
Quarter: 2021Q3

REPORT INFORMATION
  Report Type: Spontaneous
  Country: NL (occurrence: NL)
  Receive Date: 20210708
  Receipt Date: 20210708
  Transmission Date: 20211014
  Serious: Yes (Other)
  Sender: FDA-Public Use
  Company Number: NL-ACCORD-230673

PATIENT
  Age: 65 Year
  Sex: Male
  Weight: 84 kg

DRUGS (3)
  1. PEMBROLIZUMAB. [Suspect]
     Active Substance: PEMBROLIZUMAB
     Indication: PRODUCT USED FOR UNKNOWN INDICATION
     Dosage: PEMBROLIZUMAB INFUSION
     Dates: start: 20200103, end: 20210417
  2. ASTRAZENECA COVID?19 VACCINE [Suspect]
     Active Substance: AZD-1222
     Indication: COVID-19 IMMUNISATION
     Dosage: INJECTION SOLUTION/ COVID?19 VACCINE?ASTRAZENECA INJECTION SOLUTION
     Dates: start: 20210414
  3. CARBOPLATIN. [Suspect]
     Active Substance: CARBOPLATIN
     Indication: PRODUCT USED FOR UNKNOWN INDICATION
     Dosage: INFOPL CONC 10 MG/ML / BRAND NAME NOT SPECIFIED
     Dates: start: 20200103, end: 20210417

REACTIONS (2)
  - Deafness bilateral [Not Recovered/Not Resolved]
  - Balance disorder [Not Recovered/Not Resolved]

NARRATIVE: CASE EVENT DATE: 20210420
